FAERS Safety Report 10420773 (Version 1)
Quarter: 2014Q3

REPORT INFORMATION
  Report Type: Spontaneous
  Country: US (occurrence: None)
  Receive Date: 20140709
  Receipt Date: 20140709
  Transmission Date: 20150326
  Serious: Yes (Other)
  Sender: FDA-Public Use
  Company Number: PHEH2013US018950

PATIENT
  Age: 84 Year
  Sex: Male

DRUGS (12)
  1. GLEEVEC [Suspect]
     Active Substance: IMATINIB MESYLATE
     Route: 048
  2. SIMVASTATIN. [Concomitant]
     Active Substance: SIMVASTATIN
  3. FUROSEMIDE. [Concomitant]
     Active Substance: FUROSEMIDE
  4. KLOR-CON [Concomitant]
     Active Substance: POTASSIUM CHLORIDE
  5. CETIRIZINE HYDROCHLORIDE. [Concomitant]
     Active Substance: CETIRIZINE HYDROCHLORIDE
  6. COREG [Concomitant]
     Active Substance: CARVEDILOL
  7. METOLAZONE. [Concomitant]
     Active Substance: METOLAZONE
  8. ASPIRIN. [Concomitant]
     Active Substance: ASPIRIN
  9. METAMUCIL [Concomitant]
     Active Substance: PLANTAGO SEED
  10. STOOL SOFTENER [Concomitant]
     Active Substance: DOCUSATE CALCIUM
  11. CITRACAL PLUS [Concomitant]
     Active Substance: CALCIUM\MAGNESIUM\VITAMIN D\ZINC
  12. CENTRUM SILVER [Concomitant]
     Active Substance: VITAMINS

REACTIONS (8)
  - Fall [None]
  - Vision blurred [None]
  - Dizziness [None]
  - Pericardial effusion [None]
  - Pleural effusion [None]
  - Incorrect dose administered [None]
  - Discomfort [None]
  - Oedema peripheral [None]
